FAERS Safety Report 14229846 (Version 1)
Quarter: 2017Q4

REPORT INFORMATION
  Report Type: Spontaneous
  Country: ES (occurrence: ES)
  Receive Date: 20171128
  Receipt Date: 20171128
  Transmission Date: 20180321
  Serious: No
  Sender: FDA-Public Use
  Company Number: ES-ANTARES PHARMA, INC.-2016-LIT-ME-0368

PATIENT
  Age: 37 Year
  Sex: Male

DRUGS (2)
  1. METHOTREXATE. [Suspect]
     Active Substance: METHOTREXATE
     Indication: PSORIASIS
     Dosage: 15 MG, QWK
     Route: 058
  2. METHOTREXATE. [Suspect]
     Active Substance: METHOTREXATE
     Dosage: UNK
     Route: 048

REACTIONS (3)
  - Injection site reaction [Recovered/Resolved]
  - Scab [Recovered/Resolved]
  - Application site papules [Recovered/Resolved]
